FAERS Safety Report 21570469 (Version 1)
Quarter: 2022Q4

REPORT INFORMATION
  Report Type: Spontaneous
  Country: US (occurrence: US)
  Receive Date: 20221109
  Receipt Date: 20221109
  Transmission Date: 20230113
  Serious: Yes (Death)
  Sender: FDA-Public Use
  Company Number: US-EIGER BIOPHARMACEUTICALS-EIG-2022-000002

PATIENT

DRUGS (1)
  1. ZOKINVY [Suspect]
     Active Substance: LONAFARNIB
     Indication: Progeria
     Dosage: 75 MG, BID (ONE 75MG CAPSULE TWICE PER DAY)
     Route: 048
     Dates: start: 20210216

REACTIONS (1)
  - Death [Fatal]

NARRATIVE: CASE EVENT DATE: 20220112
